FAERS Safety Report 13645332 (Version 2)
Quarter: 2017Q3

REPORT INFORMATION
  Report Type: Spontaneous
  Country: US (occurrence: US)
  Receive Date: 20170612
  Receipt Date: 20170807
  Transmission Date: 20171127
  Serious: No
  Sender: FDA-Public Use
  Company Number: US-009507513-1706USA002278

PATIENT
  Age: 38 Year
  Sex: Female
  Weight: 98.41 kg

DRUGS (1)
  1. NEXPLANON [Suspect]
     Active Substance: ETONOGESTREL
     Dosage: 1 ROD EVERY 3 YEARS
     Route: 059
     Dates: start: 20160721, end: 20170530

REACTIONS (3)
  - Device kink [Recovered/Resolved]
  - Vaginal haemorrhage [Unknown]
  - No adverse event [Unknown]

NARRATIVE: CASE EVENT DATE: 20170515
